FAERS Safety Report 6464185-8 (Version None)
Quarter: 2009Q4

REPORT INFORMATION
  Report Type: 
  Country: None (occurrence: None)
  Receive Date: 20091201
  Receipt Date: 20091111
  Transmission Date: 20100525
  Serious: Yes (Hospitalization)
  Sender: FDA-Public Use
  Company Number: PHHY2009US50256

PATIENT
  Age: 62 Year
  Sex: Female

DRUGS (2)
  1. METYRAPONE [Suspect]
     Indication: ADRENAL BLOCKADE THERAPY
     Dosage: 750 MG, Q6H
  2. KETOCONAZOLE [Suspect]
     Indication: ADRENAL BLOCKADE THERAPY
     Dosage: 600 MG, BID

REACTIONS (6)
  - ADRENAL INSUFFICIENCY [None]
  - CIRCULATORY COLLAPSE [None]
  - GRANULOCYTOPENIA [None]
  - LEUKOPENIA [None]
  - NEUTROPENIA [None]
  - RED BLOOD CELL NUCLEATED MORPHOLOGY PRESENT [None]
